FAERS Safety Report 20233895 (Version 1)
Quarter: 2021Q4

REPORT INFORMATION
  Report Type: Spontaneous
  Country: US (occurrence: None)
  Receive Date: 20211227
  Receipt Date: 20211227
  Transmission Date: 20220303
  Serious: Yes (Other)
  Sender: FDA-Public Use
  Company Number: None

PATIENT
  Age: 56 Year
  Sex: Female
  Weight: 96.34 kg

DRUGS (22)
  1. BARICITINIB [Suspect]
     Active Substance: BARICITINIB
     Indication: COVID-19
     Dosage: FREQUENCY : DAILY;?
     Route: 048
     Dates: start: 20211221, end: 20211222
  2. ALBUTEROL [Concomitant]
     Active Substance: ALBUTEROL
     Dates: start: 20211221, end: 20211224
  3. ALBUTEROL\IPRATROPIUM [Concomitant]
     Active Substance: ALBUTEROL\IPRATROPIUM
     Dates: start: 20211223, end: 20211226
  4. BENZONATATE [Concomitant]
     Active Substance: BENZONATATE
     Dates: start: 20211221, end: 20211222
  5. CODEINE-GUAIFENESIN [Concomitant]
     Active Substance: CODEINE PHOSPHATE\GUAIFENESIN
     Dates: start: 20211221, end: 20211223
  6. DEXAMETHASONE [Concomitant]
     Active Substance: DEXAMETHASONE
     Dates: start: 20211216, end: 20211225
  7. DIPHENHYDRAMINE [Concomitant]
     Active Substance: DIPHENHYDRAMINE
     Dates: start: 20211221, end: 20211225
  8. ENOXAPARIN [Concomitant]
     Active Substance: ENOXAPARIN
     Dates: start: 20211221, end: 20211226
  9. GUAIFENESIN [Concomitant]
     Active Substance: GUAIFENESIN
     Dates: start: 20211220, end: 20211223
  10. HYDROXYZINE [Concomitant]
     Active Substance: HYDROXYZINE HYDROCHLORIDE
     Dates: start: 20211222, end: 20211223
  11. LORAZEPAM [Concomitant]
     Active Substance: LORAZEPAM
     Dates: start: 20211222, end: 20211223
  12. MELATONIN [Concomitant]
     Active Substance: MELATONIN
     Dates: start: 20211223, end: 20211224
  13. MONTELUKAST [Concomitant]
     Active Substance: MONTELUKAST SODIUM
     Dates: start: 20211222, end: 20211225
  14. MORPHINE [Concomitant]
     Active Substance: MORPHINE
     Dates: start: 20211222, end: 20211222
  15. NYSTATIN [Concomitant]
     Active Substance: NYSTATIN
     Dates: start: 20211220, end: 20211226
  16. ONDANSETRON [Concomitant]
     Active Substance: ONDANSETRON
     Dates: start: 20211216, end: 20211220
  17. PSEUDOEPHEDRINE [Concomitant]
     Active Substance: PSEUDOEPHEDRINE
     Dates: start: 20211222, end: 20211222
  18. REMDESIVIR [Concomitant]
     Active Substance: REMDESIVIR
     Dates: start: 20211220, end: 20211222
  19. ACETAMINOPHEN [Concomitant]
     Active Substance: ACETAMINOPHEN
     Dates: start: 20211216, end: 20211226
  20. Al hydroxide/Mg hydroxide/simethicone [Concomitant]
     Dates: start: 20211223, end: 20211223
  21. CALCIUM CARBONATE [Concomitant]
     Active Substance: CALCIUM CARBONATE
     Dates: start: 20211222, end: 20211222
  22. LIDOCAINE [Concomitant]
     Active Substance: LIDOCAINE
     Dates: start: 20211223, end: 20211223

REACTIONS (3)
  - Alanine aminotransferase increased [None]
  - Aspartate aminotransferase increased [None]
  - Transaminases increased [None]

NARRATIVE: CASE EVENT DATE: 20211223
